FAERS Safety Report 8712782 (Version 2)
Quarter: 2012Q4

REPORT INFORMATION
  Report Type: 
  Country: US (occurrence: US)
  Receive Date: 20120808
  Receipt Date: 20121017
  Transmission Date: 20130627
  Serious: No
  Sender: FDA-Public Use
  Company Number: US-ROXANE LABORATORIES, INC.-2012-RO-01606RO

PATIENT
  Age: 74 Year
  Sex: Male

DRUGS (4)
  1. PERINDOPRIL ERBUMINE [Suspect]
     Indication: HYPERTENSION
     Dosage: 4 mg
     Route: 048
  2. PERINDOPRIL ERBUMINE [Suspect]
     Dosage: 2 mg
     Route: 048
  3. PLAVIX [Concomitant]
  4. FLOMAX [Concomitant]

REACTIONS (2)
  - Blood pressure fluctuation [Not Recovered/Not Resolved]
  - Product quality issue [Unknown]
